FAERS Safety Report 4299647-5 (Version None)
Quarter: 2004Q1

REPORT INFORMATION
  Report Type: 
  Country: None (occurrence: None)
  Receive Date: 20040126
  Receipt Date: 20030924
  Transmission Date: 20041129
  Serious: No
  Sender: FDA-Public Use
  Company Number: USA030948115

PATIENT
  Age: 8 Year
  Sex: Male
  Weight: 25 kg

DRUGS (7)
  1. STRATTERA [Suspect]
     Indication: ATTENTION DEFICIT/HYPERACTIVITY DISORDER
     Dosage: 25 MG/DAY
     Dates: start: 20030905
  2. CONCERTA [Concomitant]
  3. MULTI-VITAMINS [Concomitant]
  4. COUGH [Concomitant]
  5. RHINORRHOEA [Concomitant]
  6. MALAISE [Concomitant]
  7. AGITATION [Concomitant]

REACTIONS (7)
  - AGITATION [None]
  - COUGH [None]
  - DYSPEPSIA [None]
  - FATIGUE [None]
  - MALAISE [None]
  - PYREXIA [None]
  - RHINORRHOEA [None]
